FAERS Safety Report 8762915 (Version 2)
Quarter: 2012Q4

REPORT INFORMATION
  Report Type: Spontaneous
  Country: US (occurrence: None)
  Receive Date: 20120824
  Receipt Date: 20120830
  Transmission Date: 20130627
  Serious: Yes (Other)
  Sender: FDA-Public Use
  Company Number: 2012AP002527

PATIENT
  Sex: Male

DRUGS (5)
  1. LITHIUM CARBONATE [Suspect]
     Indication: FOETAL EXPOSURE DURING PREGNANCY
     Route: 064
  2. BUPROPION HYDROCHLORIDE [Suspect]
     Indication: FOETAL EXPOSURE DURING PREGNANCY
     Route: 064
  3. LEVOTHYROXINE SODIUM [Concomitant]
  4. CALCIUM [Concomitant]
  5. FISH OIL [Concomitant]

REACTIONS (4)
  - Foetal exposure during pregnancy [None]
  - Feeding disorder neonatal [None]
  - Weight decrease neonatal [None]
  - Hypotonia neonatal [None]
